FAERS Safety Report 23753602 (Version 1)
Quarter: 2024Q2

REPORT INFORMATION
  Report Type: Spontaneous
  Country: US (occurrence: US)
  Receive Date: 20240417
  Receipt Date: 20240417
  Transmission Date: 20240716
  Serious: No
  Sender: FDA-Public Use
  Company Number: US-Kindeva Drug Delivery L.P.-2155670

PATIENT
  Sex: Male

DRUGS (3)
  1. ALBUTEROL SULFATE [Suspect]
     Active Substance: ALBUTEROL SULFATE
     Indication: Wheezing
     Route: 055
     Dates: start: 20240308
  2. TESSALON [Concomitant]
     Active Substance: BENZONATATE
     Dates: start: 20240308
  3. ZITHROMAX [Concomitant]
     Active Substance: AZITHROMYCIN DIHYDRATE
     Dates: start: 20240308

REACTIONS (4)
  - Nasopharyngitis [Unknown]
  - Product complaint [Unknown]
  - Cough [Unknown]
  - Wheezing [Unknown]
